FAERS Safety Report 19124629 (Version 3)
Quarter: 2021Q2

REPORT INFORMATION
  Report Type: Report from Study
  Country: CN (occurrence: CN)
  Receive Date: 20210413
  Receipt Date: 20210430
  Transmission Date: 20210717
  Serious: Yes (Other)
  Sender: FDA-Public Use
  Company Number: CN-BRISTOL-MYERS SQUIBB COMPANY-BMS-2021-010335

PATIENT
  Age: 53 Year
  Sex: Male

DRUGS (1)
  1. NIVOLUMAB [Suspect]
     Active Substance: NIVOLUMAB
     Indication: SQUAMOUS CELL CARCINOMA OF HEAD AND NECK
     Dosage: 166 MILLIGRAM, Q2WK
     Route: 041
     Dates: start: 20201210

REACTIONS (2)
  - Tumour perforation [Not Recovered/Not Resolved]
  - Carotid artery disease [Unknown]

NARRATIVE: CASE EVENT DATE: 202103
